FAERS Safety Report 14016127 (Version 3)
Quarter: 2018Q3

REPORT INFORMATION
  Report Type: Report from Study
  Country: JP (occurrence: JP)
  Receive Date: 20170927
  Receipt Date: 20180718
  Transmission Date: 20181010
  Serious: Yes (Death, Other)
  Sender: FDA-Public Use
  Company Number: JP-BAYER-2017-180094

PATIENT
  Age: 77 Year
  Sex: Male

DRUGS (20)
  1. TAKEPRON [Concomitant]
     Active Substance: LANSOPRAZOLE
     Indication: PROPHYLAXIS
     Route: 048
  2. FERROMIA [Concomitant]
     Active Substance: SODIUM FERROUS CITRATE
     Indication: PROPHYLAXIS
     Route: 048
  3. AMOBAN [Concomitant]
     Active Substance: ZOPICLONE
     Indication: PROPHYLAXIS
     Route: 048
  4. OXYGEN. [Concomitant]
     Active Substance: OXYGEN
     Indication: PULMONARY HYPERTENSION
     Dosage: UNK
     Dates: start: 20170628, end: 20180506
  5. MACITENTAN [Concomitant]
     Active Substance: MACITENTAN
     Route: 048
  6. ADEMPAS [Suspect]
     Active Substance: RIOCIGUAT
     Indication: PULMONARY HYPERTENSION
     Dosage: DAILY DOSE 4.5 MG
     Route: 048
     Dates: start: 20170713, end: 20170915
  7. EPINASTINE HYDROCHLORIDE. [Concomitant]
     Active Substance: EPINASTINE HYDROCHLORIDE
     Dosage: DAILY DOSE 10 MG
     Route: 048
     Dates: start: 20171206, end: 20180506
  8. FUDOSTEINE [Concomitant]
     Active Substance: FUDOSTEINE
     Dosage: DAILY DOSE 1200 MG
     Route: 048
     Dates: start: 20180201, end: 20180506
  9. LUBIPROSTONE [Concomitant]
     Active Substance: LUBIPROSTONE
     Dosage: DAILY DOSE 48 ?G
     Route: 048
     Dates: start: 20180305, end: 20180506
  10. ADEMPAS [Suspect]
     Active Substance: RIOCIGUAT
     Indication: PULMONARY HYPERTENSION
     Dosage: DAILY DOSE 4.5 MG
     Route: 048
     Dates: start: 20170929, end: 20180506
  11. FERROUS CITRATE [Concomitant]
     Active Substance: FERROUS CITRATE
     Dosage: DAILY DOSE 100 MG
     Route: 048
     Dates: start: 20180419, end: 20180506
  12. PURSENNID [Concomitant]
     Active Substance: SENNOSIDES A AND B
     Indication: PROPHYLAXIS
     Route: 048
  13. GASMOTIN [Concomitant]
     Active Substance: MOSAPRIDE CITRATE
     Indication: PROPHYLAXIS
     Route: 048
  14. BEPOTASTINE BESILATE [Concomitant]
     Active Substance: BEPOTASTINE BESILATE
     Dosage: DAILY DOSE 20 MG
     Route: 048
     Dates: start: 20171122, end: 20180506
  15. BUDESONIDE. [Concomitant]
     Active Substance: BUDESONIDE
     Dosage: DAILY DOSE 1 MG
     Route: 055
     Dates: start: 20170915, end: 20180506
  16. EDOXABAN [Concomitant]
     Active Substance: EDOXABAN TOSYLATE
     Dosage: DAILY DOSE 30 MG
     Route: 048
     Dates: start: 20170929, end: 20180506
  17. SPIRONOLACTONE. [Concomitant]
     Active Substance: SPIRONOLACTONE
     Dosage: DAILY DOSE 25 MG
     Route: 048
     Dates: start: 2017, end: 20180506
  18. PANTOSIN [Concomitant]
     Active Substance: PANTETHINE
     Indication: PROPHYLAXIS
     Route: 048
  19. BROTIZOLAM [Concomitant]
     Active Substance: BROTIZOLAM
     Dosage: DAILY DOSE 0.25 MG
     Route: 048
     Dates: start: 20171220, end: 20180505
  20. FUROSEMIDE. [Concomitant]
     Active Substance: FUROSEMIDE
     Dosage: DAILY DOSE 40 MG
     Route: 048
     Dates: start: 2017, end: 20180506

REACTIONS (3)
  - Pneumonia [Fatal]
  - Pulmonary hypertension [Fatal]
  - General physical health deterioration [Recovered/Resolved]

NARRATIVE: CASE EVENT DATE: 20170918
